FAERS Safety Report 4667219-6 (Version None)
Quarter: 2005Q2

REPORT INFORMATION
  Report Type: 
  Country: None (occurrence: None)
  Receive Date: 20050520
  Receipt Date: 20041026
  Transmission Date: 20051028
  Serious: No
  Sender: FDA-Public Use
  Company Number: US-BRISTOL-MYERS SQUIBB COMPANY-12749263

PATIENT
  Age: 83 Year
  Sex: Male

DRUGS (3)
  1. SINEMET [Suspect]
     Indication: PARKINSON'S DISEASE
     Route: 048
     Dates: start: 19990101
  2. ARICEPT [Concomitant]
  3. WARFARIN SODIUM [Concomitant]

REACTIONS (2)
  - HALLUCINATION [None]
  - LOSS OF CONSCIOUSNESS [None]
